FAERS Safety Report 7229429-3 (Version None)
Quarter: 2011Q1

REPORT INFORMATION
  Report Type: 
  Country: None (occurrence: None)
  Receive Date: 20110117
  Receipt Date: 20110111
  Transmission Date: 20110831
  Serious: Yes (Death, Life-Threatening)
  Sender: FDA-Public Use
  Company Number: B0690788A

PATIENT
  Sex: Male
  Weight: 67 kg

DRUGS (48)
  1. ALKERAN [Suspect]
     Indication: STEM CELL TRANSPLANT
     Dosage: 160MG PER DAY
     Route: 042
     Dates: start: 20031124, end: 20031124
  2. FUNGUARD [Suspect]
     Indication: PRODUCT USED FOR UNKNOWN INDICATION
     Route: 042
     Dates: start: 20031118, end: 20031231
  3. CYMERIN [Concomitant]
     Dosage: 500MG PER DAY
     Route: 042
     Dates: start: 20031120, end: 20031120
  4. CYLOCIDE [Concomitant]
     Dosage: 3200MG PER DAY
     Route: 042
     Dates: start: 20031110, end: 20031111
  5. LASTET [Concomitant]
     Dosage: 160MG PER DAY
     Route: 042
     Dates: start: 20031110, end: 20031113
  6. TARGOCID [Concomitant]
     Dosage: 800MG PER DAY
     Route: 042
     Dates: start: 20031120, end: 20031202
  7. MODACIN [Concomitant]
     Dosage: 2G PER DAY
     Route: 042
     Dates: start: 20040101, end: 20040110
  8. FLUITRAN [Concomitant]
     Dosage: 4MG PER DAY
     Route: 048
     Dates: start: 20031203, end: 20031211
  9. FLUITRAN [Concomitant]
     Dosage: 4MG PER DAY
     Route: 048
     Dates: start: 20031226, end: 20040107
  10. NAIXAN [Concomitant]
     Dosage: 200MG PER DAY
     Route: 048
     Dates: start: 20031228, end: 20040107
  11. FOSCAVIR [Concomitant]
     Dosage: 120ML TWICE PER DAY
     Route: 042
     Dates: start: 20040112, end: 20040114
  12. UNASYN [Suspect]
     Indication: PRODUCT USED FOR UNKNOWN INDICATION
     Dosage: 3G PER DAY
     Dates: start: 20040110, end: 20040114
  13. AMIKACIN SULFATE [Suspect]
     Indication: PRODUCT USED FOR UNKNOWN INDICATION
     Dosage: 300MG PER DAY
     Dates: start: 20040110, end: 20040114
  14. CYMERIN [Concomitant]
     Indication: STEM CELL TRANSPLANT
     Dosage: 500MG PER DAY
     Route: 042
     Dates: start: 20031117, end: 20031117
  15. MATULANE [Concomitant]
     Dosage: 150MG PER DAY
     Route: 048
     Dates: start: 20031108, end: 20031108
  16. VANCOMYCIN HCL [Concomitant]
     Dosage: 4IUAX PER DAY
     Route: 048
     Dates: start: 20031205, end: 20031222
  17. BEZATOL SR [Concomitant]
     Dosage: 400MG PER DAY
     Route: 048
     Dates: start: 20031228, end: 20040107
  18. REMICADE [Concomitant]
     Indication: IMMUNOSUPPRESSION
     Dosage: 600MG PER DAY
     Route: 042
     Dates: start: 20040101, end: 20040101
  19. NEO-MINOPHAGEN [Concomitant]
     Route: 042
     Dates: start: 20031102, end: 20031107
  20. ZOVIRAX [Concomitant]
     Dosage: 1000MG PER DAY
     Route: 048
     Dates: start: 20031109, end: 20031202
  21. SOLU-MEDROL [Concomitant]
     Route: 042
     Dates: start: 20040108, end: 20040114
  22. SANDIMMUNE [Concomitant]
     Route: 065
     Dates: start: 20040111
  23. ULCERLMIN [Concomitant]
     Dosage: 3G PER DAY
     Route: 048
     Dates: start: 20031026, end: 20031202
  24. CRAVIT [Concomitant]
     Dosage: 300MG PER DAY
     Route: 048
     Dates: start: 20031109, end: 20031204
  25. MEROPENEM [Concomitant]
     Dosage: 1G PER DAY
     Route: 042
     Dates: start: 20031123, end: 20031202
  26. HABEKACIN [Concomitant]
     Dosage: 200MG PER DAY
     Dates: start: 20031203, end: 20031224
  27. BENAMBAX [Concomitant]
     Dosage: 150MG TWICE PER DAY
     Dates: start: 20040111, end: 20040113
  28. VANCOMYCIN HCL [Suspect]
     Indication: PRODUCT USED FOR UNKNOWN INDICATION
     Dosage: 2G PER DAY
     Route: 048
     Dates: start: 20031026, end: 20031108
  29. NOVANTRONE [Concomitant]
     Dosage: 13MG PER DAY
     Route: 042
     Dates: start: 20031110, end: 20031111
  30. ZYLORIC [Concomitant]
     Dosage: 500MG PER DAY
     Route: 048
     Dates: start: 20031109, end: 20031222
  31. MODACIN [Concomitant]
     Dosage: 2G PER DAY
     Route: 042
     Dates: start: 20031203, end: 20031215
  32. MUCOSTA [Concomitant]
     Dosage: 300MG PER DAY
     Route: 048
     Dates: start: 20031223, end: 20040115
  33. CELL CEPT [Concomitant]
     Dosage: 500MG PER DAY
     Route: 048
     Dates: start: 20031227, end: 20040105
  34. FLUDARABINE PHOSPHATE [Concomitant]
     Indication: STEM CELL TRANSPLANT
     Dosage: 50MG PER DAY
     Route: 065
     Dates: start: 20031121, end: 20031124
  35. CYCLOSPORINE [Concomitant]
     Indication: IMMUNOSUPPRESSION
     Route: 065
     Dates: start: 20031123, end: 20031212
  36. SANDIMMUNE [Concomitant]
     Indication: IMMUNOSUPPRESSION
     Dosage: 1ML PER DAY
     Route: 065
     Dates: start: 20031227, end: 20040107
  37. FOSMICIN-S [Concomitant]
     Dosage: 2G PER DAY
     Route: 042
     Dates: start: 20031107, end: 20031117
  38. MAXIPIME [Concomitant]
     Dosage: 2G PER DAY
     Route: 042
     Dates: start: 20031117, end: 20031119
  39. UNKNOWN DRUG [Concomitant]
     Dosage: 250ML PER DAY
     Route: 042
     Dates: start: 20040104, end: 20040114
  40. HABEKACIN [Concomitant]
     Dates: start: 20031107, end: 20031117
  41. TARGOCID [Concomitant]
     Dosage: 400MG PER DAY
     Route: 042
     Dates: start: 20031231, end: 20040110
  42. DALACIN [Concomitant]
     Dosage: 600MG PER DAY
     Dates: start: 20031205, end: 20031215
  43. GANCICLOVIR SODIUM [Concomitant]
     Dosage: 150MG PER DAY
     Dates: start: 20031212, end: 20031219
  44. PREDONINE [Concomitant]
     Dates: start: 20031227, end: 20040110
  45. MORPHINE HYDROCHLORIDE [Concomitant]
     Dates: start: 20040107, end: 20040115
  46. FUNGUARD [Suspect]
     Dosage: 100MG PER DAY
     Route: 042
     Dates: start: 20040105, end: 20040115
  47. CIPROFLOXACIN HCL [Suspect]
     Indication: PRODUCT USED FOR UNKNOWN INDICATION
     Dosage: 300MG PER DAY
     Route: 042
     Dates: start: 20031225, end: 20031230
  48. MINOMYCIN [Concomitant]
     Dosage: 200MG PER DAY
     Route: 042
     Dates: start: 20031120, end: 20031202

REACTIONS (4)
  - VENOOCCLUSIVE LIVER DISEASE [None]
  - RESPIRATORY FAILURE [None]
  - INFECTION [None]
  - GRAFT VERSUS HOST DISEASE [None]
